FAERS Safety Report 6573777-7 (Version None)
Quarter: 2010Q1

REPORT INFORMATION
  Report Type: 
  Country: None (occurrence: None)
  Receive Date: 20100208
  Receipt Date: 20100125
  Transmission Date: 20100710
  Serious: Yes (Life-Threatening)
  Sender: FDA-Public Use
  Company Number: FR-MYLANLABS-2010S1001130

PATIENT
  Age: 60 Year
  Sex: Male

DRUGS (9)
  1. METHOTREXATE [Suspect]
     Indication: NON-HODGKIN'S LYMPHOMA
     Route: 042
     Dates: start: 20090822
  2. METHOTREXATE [Suspect]
     Dates: start: 20090915
  3. DOXORUBICIN HCL [Suspect]
     Indication: NON-HODGKIN'S LYMPHOMA
     Route: 042
     Dates: start: 20090822
  4. DOXORUBICIN HCL [Suspect]
     Route: 042
     Dates: start: 20090915
  5. VINCRISTINE [Suspect]
     Indication: NON-HODGKIN'S LYMPHOMA
     Route: 042
     Dates: start: 20090822
  6. VINCRISTINE [Suspect]
     Route: 042
     Dates: start: 20090915
  7. ENDOXAN [Suspect]
     Indication: NON-HODGKIN'S LYMPHOMA
     Route: 042
     Dates: start: 20090822
  8. ENDOXAN [Suspect]
     Route: 042
     Dates: start: 20090915
  9. MABTHERA [Suspect]
     Indication: NON-HODGKIN'S LYMPHOMA
     Route: 042
     Dates: start: 20090822

REACTIONS (2)
  - ACUTE PULMONARY OEDEMA [None]
  - CARDIAC FAILURE [None]
